FAERS Safety Report 9303666 (Version 1)
Quarter: 2013Q2

REPORT INFORMATION
  Report Type: Spontaneous
  Country: US (occurrence: None)
  Receive Date: 20130521
  Receipt Date: 20130521
  Transmission Date: 20140414
  Serious: Yes (Other)
  Sender: FDA-Public Use
  Company Number: None

PATIENT
  Sex: 0

DRUGS (1)
  1. MEDROXYPROGESTERONE ACETATE [Suspect]
     Route: 030
     Dates: start: 20130423, end: 20130423

REACTIONS (2)
  - Injury associated with device [None]
  - Device failure [None]
